FAERS Safety Report 5854281-8 (Version None)
Quarter: 2008Q3

REPORT INFORMATION
  Report Type: 
  Country: None (occurrence: None)
  Receive Date: 20080822
  Receipt Date: 20080812
  Transmission Date: 20090109
  Serious: Yes (Other)
  Sender: FDA-Public Use
  Company Number: FR-PFIZER INC-2008068208

PATIENT
  Sex: Female

DRUGS (10)
  1. EXEMESTANE [Suspect]
     Indication: BREAST CANCER
     Route: 048
  2. RISPERDAL [Concomitant]
  3. SELOKEN [Concomitant]
  4. FRACTAL [Concomitant]
  5. DIAMICRON [Concomitant]
  6. GLUCOR [Concomitant]
  7. COAPROVEL [Concomitant]
  8. PREVISCAN [Concomitant]
  9. CLARITHROMYCIN [Concomitant]
     Dates: start: 20070926
  10. MUCOMYST [Concomitant]
     Dates: start: 20070926

REACTIONS (2)
  - DEEP VEIN THROMBOSIS [None]
  - PULMONARY EMBOLISM [None]
